FAERS Safety Report 8305372-3 (Version None)
Quarter: 2012Q2

REPORT INFORMATION
  Report Type: 
  Country: None (occurrence: None)
  Receive Date: 20120418
  Receipt Date: 20120405
  Transmission Date: 20120825
  Serious: Yes (Hospitalization, Other)
  Sender: FDA-Public Use
  Company Number: GER/ITL/12/0023906

PATIENT
  Age: 61 Year
  Sex: Male

DRUGS (5)
  1. GLYBURIDE [Suspect]
     Indication: TYPE 2 DIABETES MELLITUS
     Dosage: 2.5 MG,  2 IN 1 D, ORAL
     Route: 048
  2. METFORMIN HCL [Suspect]
     Indication: TYPE 2 DIABETES MELLITUS
     Dosage: 400 MG, 2 IN 1 D, ORAL
     Route: 048
  3. LEVOFLOXACIN [Suspect]
     Indication: INFECTION
     Dosage: 500 MG, ORAL
     Route: 048
  4. HYDROMORPHONE HCL [Suspect]
     Indication: PRODUCT USED FOR UNKNOWN INDICATION
     Dosage: 16 MG, ORAL
     Route: 048
  5. NADROPARIN (NADROPARIN) [Suspect]
     Indication: DEEP VEIN THROMBOSIS
     Dosage: 5700 UI, SUBCUTANEOUS
     Route: 058

REACTIONS (2)
  - DRUG INTERACTION [None]
  - HYPOGLYCAEMIC COMA [None]
